FAERS Safety Report 16004280 (Version 2)
Quarter: 2019Q1

REPORT INFORMATION
  Report Type: Spontaneous
  Country: FR (occurrence: FR)
  Receive Date: 20190226
  Receipt Date: 20190321
  Transmission Date: 20190418
  Serious: Yes (Hospitalization)
  Sender: FDA-Public Use
  Company Number: FR-BEH-2019099608

PATIENT
  Age: 67 Year
  Sex: Male

DRUGS (1)
  1. PRIVIGEN [Suspect]
     Active Substance: HUMAN IMMUNOGLOBULIN G
     Indication: POLYNEUROPATHY
     Dosage: 40 G, TOT
     Route: 041
     Dates: start: 20190107, end: 20190107

REACTIONS (3)
  - Pharyngeal oedema [Recovered/Resolved]
  - Dyspnoea [Recovered/Resolved]
  - Erythema [Recovering/Resolving]

NARRATIVE: CASE EVENT DATE: 20190107
